FAERS Safety Report 11287779 (Version 1)
Quarter: 2015Q3

REPORT INFORMATION
  Report Type: Report from Study
  Country: DE (occurrence: DE)
  Receive Date: 20150721
  Receipt Date: 20150721
  Transmission Date: 20151125
  Serious: Yes (Hospitalization)
  Sender: FDA-Public Use
  Company Number: DE-CELGENE-DEU-2015052957

PATIENT
  Age: 73 Year
  Sex: Female
  Weight: 55.5 kg

DRUGS (21)
  1. CARBIDOPA. [Concomitant]
     Active Substance: CARBIDOPA
     Indication: RESTLESS LEGS SYNDROME
     Route: 048
     Dates: start: 2012
  2. DOXEPIN [Concomitant]
     Active Substance: DOXEPIN
     Indication: DEPRESSION
     Route: 048
     Dates: start: 2000
  3. METAMIZOL [Concomitant]
     Active Substance: METAMIZOLE SODIUM
     Indication: PAIN
     Dosage: 150 MILLIGRAM
     Route: 048
     Dates: start: 201502
  4. ACETYLCYSTEIN [Concomitant]
     Active Substance: ACETYLCYSTEINE
     Indication: COUGH
     Route: 048
     Dates: start: 201502, end: 20150511
  5. GEMCITABINE [Suspect]
     Active Substance: GEMCITABINE\GEMCITABINE HYDROCHLORIDE
     Indication: ADENOCARCINOMA PANCREAS
     Route: 041
     Dates: start: 20150428, end: 20150512
  6. GEMCITABINE [Suspect]
     Active Substance: GEMCITABINE\GEMCITABINE HYDROCHLORIDE
     Dosage: 40 MILLILITER
     Route: 041
     Dates: start: 20150428, end: 20150505
  7. PANTOPRAZOLE SODIUM. [Concomitant]
     Active Substance: PANTOPRAZOLE SODIUM
     Indication: PROPHYLAXIS AGAINST GASTROINTESTINAL ULCER
     Route: 048
     Dates: start: 2004
  8. RIVAROXABAN [Concomitant]
     Active Substance: RIVAROXABAN
     Indication: EMBOLISM
     Dosage: 25 MILLIGRAM
     Route: 048
     Dates: start: 20150422, end: 20150511
  9. APREPITANT. [Concomitant]
     Active Substance: APREPITANT
     Indication: PROPHYLAXIS
     Route: 048
     Dates: start: 20150428, end: 20150428
  10. KREON [Concomitant]
     Active Substance: PANCRELIPASE
     Indication: PANCREATIC INSUFFICIENCY
     Route: 048
     Dates: start: 201502
  11. NACL [Concomitant]
     Active Substance: SODIUM CHLORIDE
     Indication: RENAL FAILURE
     Dosage: 40 MILLIGRAM
     Route: 041
     Dates: start: 20150526
  12. OBSTINOL [Concomitant]
     Indication: CONSTIPATION
     Route: 048
     Dates: start: 201502, end: 20150511
  13. ABRAXANE [Suspect]
     Active Substance: PACLITAXEL
     Dosage: 1000 MILLIGRAM
     Route: 041
     Dates: start: 20150428, end: 20150505
  14. NITRAZEPAM [Concomitant]
     Active Substance: NITRAZEPAM
     Indication: INSOMNIA
     Dosage: 1.5 LITERS
     Route: 048
     Dates: start: 20150428, end: 20150527
  15. LEVODOPA [Concomitant]
     Active Substance: LEVODOPA
     Indication: RESTLESS LEGS SYNDROME
     Route: 048
     Dates: start: 2012
  16. FUROSEMIDE. [Concomitant]
     Active Substance: FUROSEMIDE
     Indication: OEDEMA
     Route: 048
     Dates: start: 20150428
  17. VENLAFAXIN [Concomitant]
     Active Substance: VENLAFAXINE HYDROCHLORIDE
     Indication: DEPRESSION
     Route: 048
     Dates: start: 2000
  18. ABRAXANE [Suspect]
     Active Substance: PACLITAXEL
     Indication: ADENOCARCINOMA PANCREAS
     Route: 041
     Dates: start: 20150428, end: 20150512
  19. PANCREATIC ENZYMES [Concomitant]
     Active Substance: UNSPECIFIED INGREDIENT
     Indication: PANCREATIC INSUFFICIENCY
     Dosage: 100 MILLIGRAM
     Route: 048
     Dates: start: 201502
  20. ENOXAPARIN [Concomitant]
     Active Substance: ENOXAPARIN
     Indication: THROMBOSIS PROPHYLAXIS
     Dosage: 4 DOSAGE FORMS
     Route: 048
     Dates: start: 20150220, end: 20150421
  21. APREPITANT. [Concomitant]
     Active Substance: APREPITANT
     Dosage: 40 MILLIGRAM
     Route: 048
     Dates: start: 20150429, end: 20150430

REACTIONS (2)
  - Stomatitis [Recovered/Resolved]
  - Renal failure [Recovered/Resolved]

NARRATIVE: CASE EVENT DATE: 20150506
